FAERS Safety Report 11204289 (Version 2)
Quarter: 2015Q3

REPORT INFORMATION
  Report Type: Spontaneous
  Country: AU (occurrence: AU)
  Receive Date: 20150620
  Receipt Date: 20150817
  Transmission Date: 20151125
  Serious: Yes (Hospitalization, Other)
  Sender: FDA-Public Use
  Company Number: PHHY2015AU073749

PATIENT
  Age: 49 Year
  Sex: Male

DRUGS (2)
  1. GILENYA [Suspect]
     Active Substance: FINGOLIMOD HYDROCHLORIDE
     Indication: MULTIPLE SCLEROSIS
     Dosage: UNK UNK, QD
     Route: 048
     Dates: start: 201110, end: 201406
  2. COPAXONE [Concomitant]
     Active Substance: GLATIRAMER ACETATE
     Indication: MULTIPLE SCLEROSIS
     Dosage: 20 MG, MANE
     Route: 065
     Dates: start: 20110328

REACTIONS (9)
  - Multiple sclerosis [Unknown]
  - Squamous cell carcinoma of the tongue [Unknown]
  - Dysphagia [Unknown]
  - Central nervous system lesion [Unknown]
  - Muscle spasticity [Unknown]
  - Paresis [Unknown]
  - Paralysis [Unknown]
  - Multiple sclerosis relapse [Unknown]
  - Dysarthria [Unknown]

NARRATIVE: CASE EVENT DATE: 201406
